FAERS Safety Report 4389983-6 (Version None)
Quarter: 2004Q2

REPORT INFORMATION
  Report Type: 
  Country: None (occurrence: None)
  Receive Date: 20040630
  Receipt Date: 20040616
  Transmission Date: 20050107
  Serious: Yes (Death, Life-Threatening, Hospitalization, Other)
  Sender: FDA-Public Use
  Company Number: 2004027922

PATIENT
  Age: 72 Year
  Sex: Male

DRUGS (9)
  1. ZITHROMAX [Suspect]
     Indication: BRONCHITIS ACUTE
     Dosage: 500 MG, (500 MG , 1 IN 1 D), ORAL
     Route: 048
     Dates: start: 20040322, end: 20040324
  2. PELEX (CAFFEINE, CHLORPHENAMINE MALEATE, PARACETAMOL, SALICYLAMIDE) [Concomitant]
  3. SERRAPEPTASE (SERRAPEPTASE) [Concomitant]
  4. TEPRENONE (TERPRENONE) [Concomitant]
  5. ALL OTHER THERAPUETIC PRODUCTS (ALL OTHER THERAPEUTIC PRODUCTS) [Concomitant]
  6. BUFFERIN [Concomitant]
  7. TULOBUTEROL HYDROCHLORIDE (TULOBUTEROL HYDROCHLORIDE) [Concomitant]
  8. CEFDINIR (CEFINIR) [Concomitant]
  9. CLINDAMYCIN HCL [Concomitant]

REACTIONS (13)
  - ACUTE MYELOID LEUKAEMIA [None]
  - BRONCHITIS ACUTE [None]
  - CANDIDIASIS [None]
  - DISSEMINATED INTRAVASCULAR COAGULATION [None]
  - DRUG INEFFECTIVE [None]
  - FAECES DISCOLOURED [None]
  - FUNGAEMIA [None]
  - HAEMATOCRIT DECREASED [None]
  - HAEMOGLOBIN DECREASED [None]
  - MELAENA [None]
  - NEUTROPENIA [None]
  - PALLOR [None]
  - PLATELET COUNT DECREASED [None]
